FAERS Safety Report 4420936-5 (Version None)
Quarter: 2004Q3

REPORT INFORMATION
  Report Type: 
  Country: None (occurrence: None)
  Receive Date: 20040809
  Receipt Date: 20040727
  Transmission Date: 20050211
  Serious: Yes (Hospitalization, Other)
  Sender: FDA-Public Use
  Company Number: US-JNJFOC-20040506024

PATIENT
  Sex: Female
  Weight: 62.6 kg

DRUGS (11)
  1. REMICADE [Suspect]
     Indication: CROHN'S DISEASE
     Dosage: EVERY 6 WEEKS
     Route: 042
     Dates: start: 20020201
  2. REMICADE [Suspect]
     Indication: RHEUMATOID ARTHRITIS
     Route: 042
     Dates: start: 20020201
  3. TOPROL-XL [Suspect]
     Route: 049
  4. TOPROL-XL [Suspect]
     Indication: HYPERTENSION
     Dosage: DOSE REDUCED EACH DAY FOR 5 DAYS, THEN DISCONTINUED.
     Route: 049
  5. IMURAN [Concomitant]
     Route: 049
  6. IMURAN [Concomitant]
     Indication: CROHN'S DISEASE
     Route: 049
  7. IMURAN [Concomitant]
     Indication: RHEUMATOID ARTHRITIS
     Route: 049
  8. LESNESTINA [Concomitant]
     Indication: HORMONE REPLACEMENT THERAPY
  9. VITAMIN B-12 [Concomitant]
  10. CELESTAN [Concomitant]
     Route: 049
  11. LODINE [Concomitant]
     Indication: ARTHRITIS
     Route: 049

REACTIONS (5)
  - CHILLS [None]
  - CONTUSION [None]
  - EPISTAXIS [None]
  - FACE INJURY [None]
  - LOSS OF CONSCIOUSNESS [None]
